FAERS Safety Report 9182905 (Version 1)
Quarter: 2013Q1

REPORT INFORMATION
  Report Type: Spontaneous
  Country: US (occurrence: US)
  Receive Date: 20130322
  Receipt Date: 20130322
  Transmission Date: 20140127
  Serious: Yes (Other)
  Sender: FDA-Public Use
  Company Number: US-BRISTOL-MYERS SQUIBB COMPANY-16413395

PATIENT
  Age: 49 Year
  Sex: Male
  Weight: 111.82 kg

DRUGS (1)
  1. ERBITUX [Suspect]
     Indication: TONSIL CANCER
     Dosage: TEST DOSE 100MG
     Route: 042
     Dates: start: 20120221, end: 20120221

REACTIONS (1)
  - Infusion related reaction [Recovered/Resolved]
